FAERS Safety Report 8404301-1 (Version None)
Quarter: 2012Q2

REPORT INFORMATION
  Report Type: 
  Country: None (occurrence: None)
  Receive Date: 20120601
  Receipt Date: 20120523
  Transmission Date: 20120825
  Serious: Yes (Hospitalization)
  Sender: FDA-Public Use
  Company Number: JP-VERTEX PHARMACEUTICALS INC.-AE-2012-007781

PATIENT
  Age: 62 Year
  Sex: Male

DRUGS (3)
  1. PEGINTERFERON ALFA-2B [Concomitant]
  2. TELAVIC (TELAPREVIR) [Suspect]
     Indication: HEPATITIS C
     Route: 048
     Dates: start: 20120516, end: 20120519
  3. RIBAVIRIN [Concomitant]
     Route: 048

REACTIONS (2)
  - RENAL IMPAIRMENT [None]
  - DRUG ERUPTION [None]
